FAERS Safety Report 11807177 (Version 1)
Quarter: 2015Q4

REPORT INFORMATION
  Report Type: Spontaneous
  Country: JP (occurrence: JP)
  Receive Date: 20151207
  Receipt Date: 20151207
  Transmission Date: 20160305
  Serious: Yes (Other)
  Sender: FDA-Public Use
  Company Number: JP-TEVA-597924ISR

PATIENT
  Age: 73 Year
  Sex: Male

DRUGS (2)
  1. GEMCITABINE [Suspect]
     Active Substance: GEMCITABINE\GEMCITABINE HYDROCHLORIDE
     Indication: BILE DUCT CANCER
     Dosage: 1000 MG/ME2 ON EACH DAY 1 AND 8 EVERY 3 WEEKS
     Route: 042
  2. CISPLATIN. [Suspect]
     Active Substance: CISPLATIN
     Indication: BILE DUCT CANCER
     Dosage: 25MG/ME2 OF BODY SURFACE AREA ON EACH DAY 1 AND 8 EVERY 3 WEEKS
     Route: 042

REACTIONS (1)
  - Performance status decreased [Unknown]
